FAERS Safety Report 4379557-5 (Version None)
Quarter: 2004Q2

REPORT INFORMATION
  Report Type: 
  Country: None (occurrence: None)
  Receive Date: 20040610
  Receipt Date: 20040527
  Transmission Date: 20050107
  Serious: Yes (Other)
  Sender: FDA-Public Use
  Company Number: SUS1-2004-00331

PATIENT
  Age: 44 Year

DRUGS (1)
  1. ADDERALL 10 [Suspect]
     Dosage: 20 MG, 3X/DAY:TID

REACTIONS (1)
  - MYOCARDIAL INFARCTION [None]
